FAERS Safety Report 7098475-5 (Version None)
Quarter: 2010Q4

REPORT INFORMATION
  Report Type: 
  Country: None (occurrence: None)
  Receive Date: 20101104
  Receipt Date: 20101025
  Transmission Date: 20110411
  Serious: Yes (Other)
  Sender: FDA-Public Use
  Company Number: CL-259-2010

PATIENT
  Sex: Female
  Weight: 2.48 kg

DRUGS (12)
  1. CIPROFLOXACIN [Suspect]
     Indication: SEPSIS
     Dosage: 25MG BD INTRAVENOUS
     Route: 042
     Dates: start: 20101012, end: 20101014
  2. DOPAMINE HYDROCHLORIDE [Concomitant]
  3. FLUCONAZOLE [Concomitant]
  4. FUROSEMIDE [Concomitant]
  5. GENTAMICIN HYDROCORTISONE [Concomitant]
  6. MEROPENEM TRIHYDRATE [Concomitant]
  7. MIDAZOLAM [Concomitant]
  8. MORPHINE SULFATE [Concomitant]
  9. PHYTONADIONE [Concomitant]
  10. RANITIDINE [Concomitant]
  11. SPIRONOLACTONE [Concomitant]
  12. VANCOMYCIN [Concomitant]

REACTIONS (1)
  - BRADYCARDIA NEONATAL [None]
